FAERS Safety Report 10221051 (Version 1)
Quarter: 2014Q2

REPORT INFORMATION
  Report Type: Spontaneous
  Country: CN (occurrence: CN)
  Receive Date: 20140606
  Receipt Date: 20140606
  Transmission Date: 20141212
  Serious: Yes (Hospitalization)
  Sender: FDA-Public Use
  Company Number: CN-SA-2014SA072422

PATIENT
  Age: 9 Year
  Sex: 0
  Weight: 29 kg

DRUGS (7)
  1. THYMOGLOBULINE [Suspect]
     Indication: APLASTIC ANAEMIA
     Route: 065
     Dates: start: 20140117, end: 20140121
  2. SULBACTAM [Concomitant]
     Indication: INFECTION
     Dates: start: 20140203, end: 20140208
  3. CEFOPERAZONE [Concomitant]
     Indication: INFECTION
     Dates: start: 20140203, end: 20140208
  4. ALL OTHER THERAPEUTIC PRODUCTS [Concomitant]
     Indication: ABDOMINAL PAIN UPPER
     Dates: start: 20140205, end: 20140205
  5. OMEPRAZOLE SODIUM [Concomitant]
     Indication: ABDOMINAL PAIN UPPER
     Dosage: 25 MG FOR 1 DAY; 50 MG FOR 3 DAYS
     Dates: start: 20140204, end: 20140207
  6. ATROPINE [Concomitant]
     Indication: ABDOMINAL PAIN UPPER
     Dates: start: 20140205, end: 20140205
  7. CYCLOSPORIN [Concomitant]
     Indication: APLASTIC ANAEMIA
     Dates: start: 20140207, end: 20140208

REACTIONS (5)
  - Abasia [Unknown]
  - Serum sickness [Recovered/Resolved]
  - Pyrexia [Recovered/Resolved]
  - Arthralgia [Recovered/Resolved]
  - Arthralgia [Recovered/Resolved]
